FAERS Safety Report 6284432-5 (Version None)
Quarter: 2009Q3

REPORT INFORMATION
  Report Type: 
  Country: None (occurrence: None)
  Receive Date: 20090727
  Receipt Date: 20090717
  Transmission Date: 20100115
  Serious: Yes (Other)
  Sender: FDA-Public Use
  Company Number: US-ROCHE-644653

PATIENT
  Sex: Female
  Weight: 74.8 kg

DRUGS (4)
  1. BONIVA [Suspect]
     Indication: OSTEOPOROSIS
     Route: 065
     Dates: end: 20090401
  2. HUMIRA [Suspect]
     Indication: RHEUMATOID ARTHRITIS
     Dosage: FORM: PRE FILLED SYRINGE; STRENGTH: 40 MG/0.8 ML
     Route: 065
     Dates: start: 20040101, end: 20090401
  3. ATORVASTATIN CALCIUM [Concomitant]
  4. OLMESARTAN MEDOXOMIL [Concomitant]
     Indication: BLOOD PRESSURE
     Dosage: DOSE: 20/12.5

REACTIONS (1)
  - RENAL ATROPHY [None]
